FAERS Safety Report 6169419-5 (Version None)
Quarter: 2009Q2

REPORT INFORMATION
  Report Type: 
  Country: None (occurrence: None)
  Receive Date: 20090428
  Receipt Date: 20090415
  Transmission Date: 20091009
  Serious: Yes (Other)
  Sender: FDA-Public Use
  Company Number: PHHY2009NL14277

PATIENT
  Sex: Male

DRUGS (3)
  1. GLEEVEC [Suspect]
     Indication: CHRONIC MYELOID LEUKAEMIA
     Dosage: 800 MG, UNK
  2. GLEEVEC [Suspect]
     Dosage: 400 MG, UNK
  3. DASATINIB [Concomitant]

REACTIONS (7)
  - ABDOMINAL PAIN [None]
  - CARDIAC DISORDER [None]
  - CONSTIPATION [None]
  - DYSPNOEA [None]
  - HYPERHIDROSIS [None]
  - LUNG DISORDER [None]
  - MUSCLE SPASMS [None]
